FAERS Safety Report 4871604-7 (Version None)
Quarter: 2005Q4

REPORT INFORMATION
  Report Type: 
  Country: None (occurrence: None)
  Receive Date: 20051230
  Receipt Date: 20051228
  Transmission Date: 20060501
  Serious: Yes (Hospitalization)
  Sender: FDA-Public Use
  Company Number: TCI2005A04712

PATIENT
  Age: 86 Year
  Sex: Female

DRUGS (9)
  1. ACTOS [Suspect]
     Indication: DIABETES MELLITUS
     Dosage: 30 MG (30 MG, 1 IN 1 D) PER ORAL
     Route: 048
     Dates: start: 20050621, end: 20051114
  2. ACTOS [Suspect]
     Indication: DIABETES MELLITUS
     Dosage: 30 MG (30 MG, 1 IN 1 D) PER ORAL
     Route: 048
     Dates: start: 20050621
  3. NORVASC [Suspect]
     Dosage: 2.5 MG (2.5 MG, 1 IN 1 D) PER ORAL, 5MG (5 MG, 1 IN 1 D) PER ORAL
     Route: 048
     Dates: end: 20051115
  4. NORVASC [Suspect]
     Dosage: 2.5 MG (2.5 MG, 1 IN 1 D) PER ORAL, 5MG (5 MG, 1 IN 1 D) PER ORAL
     Route: 048
     Dates: start: 20051116
  5. BASEN (VOGLIBOSE) [Concomitant]
  6. AMARYL [Concomitant]
  7. DOXAZOSIN MESYLATE [Concomitant]
  8. DIGOXIN [Concomitant]
  9. ALPRAZOLAM [Concomitant]

REACTIONS (8)
  - CARDIAC FAILURE [None]
  - HYPOXIA [None]
  - INFLAMMATION [None]
  - NASOPHARYNGITIS [None]
  - OEDEMA PERIPHERAL [None]
  - PLEURAL EFFUSION [None]
  - PYREXIA [None]
  - RESPIRATORY TRACT INFECTION [None]
